FAERS Safety Report 9900569 (Version 1)
Quarter: 2014Q1

REPORT INFORMATION
  Report Type: Spontaneous
  Country: US (occurrence: US)
  Receive Date: 20140217
  Receipt Date: 20140217
  Transmission Date: 20141002
  Serious: Yes (Hospitalization)
  Sender: FDA-Public Use
  Company Number: US-BIOGENIDEC-2014BI012594

PATIENT
  Age: 53 Year
  Sex: Female

DRUGS (4)
  1. TECFIDERA [Suspect]
     Indication: MULTIPLE SCLEROSIS
     Route: 048
     Dates: start: 20130517, end: 20130523
  2. TECFIDERA [Suspect]
     Indication: MULTIPLE SCLEROSIS
     Route: 048
     Dates: start: 20130524
  3. FENTANYL [Concomitant]
  4. OXYCODONE [Concomitant]

REACTIONS (4)
  - Myocardial infarction [Recovered/Resolved]
  - Knee operation [Unknown]
  - Staphylococcal infection [Unknown]
  - Cerebrovascular accident [Recovered/Resolved]
